FAERS Safety Report 6422287-6 (Version None)
Quarter: 2009Q4

REPORT INFORMATION
  Report Type: 
  Country: None (occurrence: None)
  Receive Date: 20091030
  Receipt Date: 20091020
  Transmission Date: 20100525
  Serious: Yes (Death)
  Sender: FDA-Public Use
  Company Number: US-PFIZER INC-2009269672

PATIENT
  Sex: Female

DRUGS (6)
  1. GABAPENTIN [Suspect]
     Dosage: 600 MG, 3X/DAY
     Route: 048
     Dates: start: 20090501
  2. COTRIM [Concomitant]
     Dosage: UNK
  3. NEOMYCIN [Concomitant]
     Dosage: UNK
  4. METFORMIN [Concomitant]
     Dosage: UNK
  5. DARVOCET [Concomitant]
     Dosage: UNK
  6. KLOR-CON [Concomitant]
     Dosage: UNK

REACTIONS (2)
  - GALLBLADDER CANCER METASTATIC [None]
  - MEDICATION RESIDUE [None]
